FAERS Safety Report 7374794-X (Version None)
Quarter: 2011Q1

REPORT INFORMATION
  Report Type: 
  Country: None (occurrence: None)
  Receive Date: 20110325
  Receipt Date: 20101116
  Transmission Date: 20110831
  Serious: No
  Sender: FDA-Public Use
  Company Number: US-MYLANLABS-2010S1021290

PATIENT
  Sex: Male
  Weight: 97.52 kg

DRUGS (4)
  1. SOMA [Concomitant]
     Indication: MUSCLE RELAXANT THERAPY
     Dates: start: 20040101
  2. FENTANYL-100 [Suspect]
     Indication: BACK PAIN
     Dosage: CHANGED Q. 48 HOURS.
     Route: 062
     Dates: start: 20081201
  3. OXYCODONE [Concomitant]
     Indication: BREAKTHROUGH PAIN
     Dosage: 10MG/325MG
     Dates: start: 20070101
  4. METOPROLOL [Concomitant]
     Indication: BLOOD PRESSURE INCREASED
     Dates: start: 20080101

REACTIONS (3)
  - DRUG EFFECT DECREASED [None]
  - BACK PAIN [None]
  - DRUG WITHDRAWAL SYNDROME [None]
